FAERS Safety Report 11297724 (Version 1)
Quarter: 2015Q3

REPORT INFORMATION
  Report Type: Spontaneous
  Country: US (occurrence: US)
  Receive Date: 20150722
  Receipt Date: 20150722
  Transmission Date: 20151125
  Serious: No
  Sender: FDA-Public Use
  Company Number: US-ELI_LILLY_AND_COMPANY-US200907005902

PATIENT
  Age: 54 Year
  Sex: Female

DRUGS (6)
  1. HUMATROPE [Suspect]
     Active Substance: SOMATROPIN
     Dosage: 0.3 MG, UNKNOWN
  2. BENICAR [Concomitant]
     Active Substance: OLMESARTAN MEDOXOMIL
     Dosage: UNK, UNKNOWN
  3. METOPROLOL [Concomitant]
     Active Substance: METOPROLOL
     Dosage: UNK, UNKNOWN
  4. LUNESTA [Concomitant]
     Active Substance: ESZOPICLONE
     Dosage: UNK, UNKNOWN
  5. JANUVIA [Concomitant]
     Active Substance: SITAGLIPTIN PHOSPHATE
     Dosage: UNK, UNKNOWN
  6. METFORMIN [Concomitant]
     Active Substance: METFORMIN HYDROCHLORIDE
     Dosage: UNK, UNKNOWN

REACTIONS (1)
  - Poor quality drug administered [Recovered/Resolved]

NARRATIVE: CASE EVENT DATE: 20090722
